FAERS Safety Report 6926196-5 (Version None)
Quarter: 2010Q3

REPORT INFORMATION
  Report Type: 
  Country: None (occurrence: None)
  Receive Date: 20100813
  Receipt Date: 20100813
  Transmission Date: 20110219
  Serious: Yes (Other)
  Sender: FDA-Public Use
  Company Number: None

PATIENT
  Age: 28 Year
  Sex: Female

DRUGS (1)
  1. ZYPREXA [Suspect]
     Indication: REFUSAL OF TREATMENT BY PATIENT
     Dosage: 10MG ONCE DAILY IM
     Route: 030
     Dates: start: 20090903, end: 20090904

REACTIONS (1)
  - SOMNOLENCE [None]
